FAERS Safety Report 11624673 (Version 1)
Quarter: 2015Q4

REPORT INFORMATION
  Report Type: Other
  Country: IL (occurrence: IL)
  Receive Date: 20151013
  Receipt Date: 20151013
  Transmission Date: 20160304
  Serious: Yes (Hospitalization)
  Sender: FDA-Public Use
  Company Number: IL-B. BRAUN MEDICAL INC.-1042862

PATIENT
  Age: 96 Year
  Sex: Female

DRUGS (8)
  1. SODIUM CHLORIDE. [Suspect]
     Active Substance: SODIUM CHLORIDE
     Indication: COLONIC PSEUDO-OBSTRUCTION
     Route: 042
  2. CLAVULANATE [Concomitant]
  3. VITAMIN B12 [Concomitant]
     Active Substance: CYANOCOBALAMIN
  4. FUROSEMIDE. [Concomitant]
     Active Substance: FUROSEMIDE
  5. FERROUS SULFATE [Concomitant]
     Active Substance: FERROUS SULFATE\FERROUS SULFATE, DRIED
  6. AMOXICILLIN. [Concomitant]
     Active Substance: AMOXICILLIN
     Route: 042
  7. CLONIDINE. [Concomitant]
     Active Substance: CLONIDINE
  8. SIMVASTATIN. [Concomitant]
     Active Substance: SIMVASTATIN

REACTIONS (1)
  - Hypertension [None]
